FAERS Safety Report 19787415 (Version 1)
Quarter: 2021Q3

REPORT INFORMATION
  Report Type: Report from Study
  Country: CA (occurrence: CA)
  Receive Date: 20210903
  Receipt Date: 20210903
  Transmission Date: 20211014
  Serious: Yes (Hospitalization)
  Sender: FDA-Public Use
  Company Number: CA-ASTRAZENECA-2021A704368

PATIENT
  Sex: Female

DRUGS (6)
  1. PREDNISONE. [Concomitant]
     Active Substance: PREDNISONE
  2. VENTOLIN [Concomitant]
     Active Substance: ALBUTEROL SULFATE
  3. OXYGEN. [Concomitant]
     Active Substance: OXYGEN
  4. ALVESCO [Concomitant]
     Active Substance: CICLESONIDE
  5. FASENRA [Suspect]
     Active Substance: BENRALIZUMAB
     Indication: ASTHMA
     Dosage: 30.0MG UNKNOWN
     Route: 058
     Dates: start: 20201119
  6. INSPIOLTO [Concomitant]
     Active Substance: OLODATEROL HYDROCHLORIDE\TIOTROPIUM BROMIDE MONOHYDRATE

REACTIONS (3)
  - General physical health deterioration [Unknown]
  - Asthenia [Unknown]
  - Decreased appetite [Unknown]
